FAERS Safety Report 6667037-3 (Version None)
Quarter: 2010Q1

REPORT INFORMATION
  Report Type: 
  Country: None (occurrence: None)
  Receive Date: 20100331
  Receipt Date: 20100318
  Transmission Date: 20100710
  Serious: Yes (Other)
  Sender: FDA-Public Use
  Company Number: 009136

PATIENT
  Sex: Male

DRUGS (2)
  1. ALPROSTADIL [Suspect]
     Indication: ERECTILE DYSFUNCTION
     Dosage: (5-20 UG. 4 DOSES.)
  2. VASOACTIVE INTESTINAL PEPTIDE W/ PHENTOLAMINE [Concomitant]

REACTIONS (3)
  - FLUSHING [None]
  - PAIN [None]
  - SYNCOPE [None]
